FAERS Safety Report 6391685-1 (Version None)
Quarter: 2009Q4

REPORT INFORMATION
  Report Type: 
  Country: None (occurrence: None)
  Receive Date: 20091006
  Receipt Date: 20090921
  Transmission Date: 20100525
  Serious: Yes (Other)
  Sender: FDA-Public Use
  Company Number: 001742

PATIENT
  Weight: 19.5 kg

DRUGS (3)
  1. VIMPAT [Suspect]
     Indication: EPILEPSY
     Dosage: DAILY DOSE : 9 CC ORAL)
     Route: 048
     Dates: start: 20090327, end: 20090921
  2. DEPAKENE [Concomitant]
  3. KEPPRA [Concomitant]

REACTIONS (1)
  - HAEMOGLOBIN DECREASED [None]
